FAERS Safety Report 11227708 (Version 1)
Quarter: 2015Q2

REPORT INFORMATION
  Report Type: Spontaneous
  Country: BR (occurrence: BR)
  Receive Date: 20150630
  Receipt Date: 20150630
  Transmission Date: 20150821
  Serious: Yes (Other)
  Sender: FDA-Public Use
  Company Number: BR-TAKEDA-2015MPI004245

PATIENT

DRUGS (11)
  1. PREDNISONE. [Concomitant]
     Active Substance: PREDNISONE
     Dosage: DOSAGE FORM: UNSPECIFIED
     Route: 065
  2. LEVOTHYROXINE [Concomitant]
     Active Substance: LEVOTHYROXINE
     Indication: HYPOTHYROIDISM
     Dosage: DOSAGE FORM: UNSPECIFIED
     Route: 065
  3. VELCADE [Suspect]
     Active Substance: BORTEZOMIB
     Dosage: DOSAGE FORM: LYOPHILIZED POWDER
     Route: 042
  4. VELCADE [Suspect]
     Active Substance: BORTEZOMIB
     Indication: PLASMA CELL MYELOMA
     Dosage: DOSAGE FORM: LYOPHILIZED POWDER
     Route: 042
  5. VELCADE [Suspect]
     Active Substance: BORTEZOMIB
     Dosage: 1.3 UNK, UNK
     Route: 058
  6. VELCADE [Suspect]
     Active Substance: BORTEZOMIB
     Dosage: 1 MG, UNK
     Route: 058
  7. MELPHALAN [Concomitant]
     Active Substance: MELPHALAN
     Dosage: DOSAGE FORM: UNSPECIFIED
     Route: 065
  8. MELPHALAN [Concomitant]
     Active Substance: MELPHALAN
     Dosage: DOSAGE FORM: UNSPECIFIED
     Route: 065
  9. MELPHALAN [Concomitant]
     Active Substance: MELPHALAN
     Dosage: DOSAGE FORM: UNSPECIFIED
     Route: 065
  10. PREDNISONE. [Concomitant]
     Active Substance: PREDNISONE
     Dosage: DOSAGE FORM: UNSPECIFIED
     Route: 065
  11. PREDNISONE. [Concomitant]
     Active Substance: PREDNISONE
     Dosage: DOSAGE FORM: UNSPECIFIED
     Route: 065

REACTIONS (2)
  - Neurological symptom [Recovered/Resolved]
  - Neuropathy peripheral [Recovered/Resolved]
